FAERS Safety Report 7991943-0 (Version None)
Quarter: 2011Q4

REPORT INFORMATION
  Report Type: 
  Country: None (occurrence: None)
  Receive Date: 20111219
  Receipt Date: 20110506
  Transmission Date: 20120403
  Serious: No
  Sender: FDA-Public Use
  Company Number: US-ASTRAZENECA-2010SE58098

PATIENT
  Sex: Female
  Weight: 71.2 kg

DRUGS (2)
  1. MULTI-VITAMINS [Concomitant]
  2. CRESTOR [Suspect]
     Indication: HYPERCHOLESTEROLAEMIA
     Route: 048
     Dates: start: 20101001

REACTIONS (3)
  - PAIN [None]
  - LUMBAR RADICULOPATHY [None]
  - MYALGIA [None]
